FAERS Safety Report 20044256 (Version 2)
Quarter: 2022Q1

REPORT INFORMATION
  Report Type: Spontaneous
  Country: CN (occurrence: CN)
  Receive Date: 20211108
  Receipt Date: 20220110
  Transmission Date: 20220423
  Serious: Yes (Other)
  Sender: FDA-Public Use
  Company Number: CN-002147023-NVSC2021CN247632

PATIENT

DRUGS (2)
  1. RUXOLITINIB [Suspect]
     Active Substance: RUXOLITINIB
     Indication: Graft versus host disease
     Dosage: 2.5 MG, QD
     Route: 048
     Dates: start: 20171226, end: 20180110
  2. METHYLPREDNISOLONE [Concomitant]
     Active Substance: METHYLPREDNISOLONE
     Indication: Product used for unknown indication
     Dosage: 1 MG/KG, Q12H
     Route: 042

REACTIONS (5)
  - BK virus infection [Unknown]
  - Cytopenia [Unknown]
  - Product use issue [Unknown]
  - Product use in unapproved indication [Unknown]
  - Treatment failure [Unknown]
